FAERS Safety Report 9423744 (Version 3)
Quarter: 2013Q4

REPORT INFORMATION
  Report Type: Report from Study
  Country: JP (occurrence: JP)
  Receive Date: 20130728
  Receipt Date: 20131118
  Transmission Date: 20140711
  Serious: Yes (Other)
  Sender: FDA-Public Use
  Company Number: PHHY2013JP079690

PATIENT
  Age: 59 Year
  Sex: Male

DRUGS (3)
  1. FTY 720 [Suspect]
     Indication: MULTIPLE SCLEROSIS
     Dosage: 0.5 MG, QD
     Route: 048
     Dates: start: 20120627, end: 20120805
  2. FTY 720 [Suspect]
     Dosage: 0.5 MG, QOD
     Route: 048
     Dates: start: 20120806
  3. SOL-MELCORT [Concomitant]
     Dosage: 1000 MG, UNK
     Route: 051
     Dates: start: 20130523, end: 20130525

REACTIONS (2)
  - Visual field defect [Recovering/Resolving]
  - Headache [Recovering/Resolving]
